FAERS Safety Report 14949849 (Version 4)
Quarter: 2019Q3

REPORT INFORMATION
  Report Type: Other
  Country: GB (occurrence: GB)
  Receive Date: 20180530
  Receipt Date: 20190930
  Transmission Date: 20191004
  Serious: Yes (Death, Hospitalization, Other)
  Sender: FDA-Public Use
  Company Number: GB-LUPIN PHARMACEUTICALS INC.-2018-02069

PATIENT
  Age: 44 Year
  Sex: Male

DRUGS (6)
  1. SERTRALINE [Suspect]
     Active Substance: SERTRALINE HYDROCHLORIDE
     Dosage: UNK
     Route: 065
     Dates: start: 201802, end: 2018
  2. CLOZARIL [Suspect]
     Active Substance: CLOZAPINE
     Indication: SCHIZOPHRENIA
     Dosage: UNK
     Route: 048
     Dates: start: 20011211
  3. CLOZARIL [Suspect]
     Active Substance: CLOZAPINE
     Dosage: UNK
     Route: 048
     Dates: start: 201802, end: 2018
  4. TRAMADOL. [Suspect]
     Active Substance: TRAMADOL
     Indication: SCHIZOPHRENIA
     Dosage: UNK
     Route: 065
  5. TRAMADOL. [Suspect]
     Active Substance: TRAMADOL
     Dosage: UNK
     Route: 065
     Dates: start: 201802, end: 2018
  6. SERTRALINE [Suspect]
     Active Substance: SERTRALINE HYDROCHLORIDE
     Indication: PRODUCT USED FOR UNKNOWN INDICATION
     Dosage: UNK
     Route: 065

REACTIONS (4)
  - Coma [Unknown]
  - Death [Fatal]
  - Delirium [Unknown]
  - Overdose [Unknown]

NARRATIVE: CASE EVENT DATE: 201802
